FAERS Safety Report 4851632-8 (Version None)
Quarter: 2005Q4

REPORT INFORMATION
  Report Type: 
  Country: None (occurrence: None)
  Receive Date: 20051212
  Receipt Date: 20051208
  Transmission Date: 20060501
  Serious: Yes (Hospitalization)
  Sender: FDA-Public Use
  Company Number: AU-MERCK-0512AUS00229

PATIENT
  Age: 64 Year
  Sex: Female

DRUGS (3)
  1. FOSAMAX [Suspect]
     Indication: OSTEOPOROSIS
     Route: 048
     Dates: start: 20000101
  2. MELOXICAM [Concomitant]
     Indication: BACK PAIN
     Route: 048
  3. CALCIUM CARBONATE [Concomitant]
     Route: 048

REACTIONS (2)
  - HIP FRACTURE [None]
  - STRESS FRACTURE [None]
